FAERS Safety Report 8018585-5 (Version None)
Quarter: 2011Q4

REPORT INFORMATION
  Report Type: 
  Country: None (occurrence: None)
  Receive Date: 20111228
  Receipt Date: 20111213
  Transmission Date: 20120403
  Serious: Yes (Death, Hospitalization)
  Sender: FDA-Public Use
  Company Number: JP-2011-12088

PATIENT
  Age: 63 Year
  Sex: Female

DRUGS (12)
  1. HANP (CARPERITIDE) [Concomitant]
  2. SAMSCA [Suspect]
     Indication: CARDIAC FAILURE CHRONIC
     Dosage: 3.75 MG MILLIGRAM(S), QOD, ORAL
     Route: 048
     Dates: start: 20111114, end: 20111119
  3. SAMSCA [Suspect]
     Indication: CARDIAC FAILURE CHRONIC
     Dosage: 3.75 MG MILLIGRAM(S), QOD, ORAL
     Route: 048
     Dates: start: 20111110, end: 20111110
  4. ROHYPNOL (FLUNITRAZEPAM) [Concomitant]
  5. ACARDI PIMOBENDAN) [Concomitant]
  6. ALDACTONE [Concomitant]
  7. WARFARIN (WARFARIN POTASSIUM) [Concomitant]
  8. DIART (AZOSEMIDE) [Concomitant]
  9. PREDNISOLONE [Concomitant]
  10. ALENDRONATE SODIUM [Suspect]
     Dosage: ORAL
     Route: 048
     Dates: end: 20111119
  11. SULFAMETHOXAZOLE AND TRIMETHOPRIM [Suspect]
     Dosage: ORAL
     Route: 048
     Dates: end: 20111119
  12. LASIX [Concomitant]

REACTIONS (3)
  - WHITE BLOOD CELL COUNT DECREASED [None]
  - SUDDEN CARDIAC DEATH [None]
  - VENTRICULAR FIBRILLATION [None]
